FAERS Safety Report 7102448-3 (Version None)
Quarter: 2010Q4

REPORT INFORMATION
  Report Type: 
  Country: None (occurrence: None)
  Receive Date: 20101115
  Receipt Date: 20101109
  Transmission Date: 20110411
  Serious: No
  Sender: FDA-Public Use
  Company Number: US-BIOGENIDEC-2010BI039033

PATIENT
  Age: 56 Year
  Sex: Female

DRUGS (4)
  1. AVONEX [Suspect]
     Indication: MULTIPLE SCLEROSIS
     Route: 030
     Dates: start: 20101108
  2. AVONEX [Suspect]
     Route: 030
     Dates: start: 20100924, end: 20101001
  3. AVONEX [Suspect]
     Route: 030
     Dates: start: 20101001, end: 20101001
  4. AVONEX [Suspect]
     Route: 030
     Dates: start: 20101001, end: 20101001

REACTIONS (5)
  - DIZZINESS [None]
  - HEADACHE [None]
  - MALAISE [None]
  - NAUSEA [None]
  - PHOTOSENSITIVITY REACTION [None]
